FAERS Safety Report 12504313 (Version 10)
Quarter: 2017Q2

REPORT INFORMATION
  Report Type: Spontaneous
  Country: US (occurrence: US)
  Receive Date: 20160628
  Receipt Date: 20170602
  Transmission Date: 20170830
  Serious: Yes (Hospitalization, Other)
  Sender: FDA-Public Use
  Company Number: US-PFIZER INC-2016314569

PATIENT
  Age: 42 Year
  Sex: Female
  Weight: 86.2 kg

DRUGS (13)
  1. NORCO [Concomitant]
     Active Substance: ACETAMINOPHEN\HYDROCODONE BITARTRATE
     Indication: ANALGESIC THERAPY
     Dosage: UNK, (5/325), (1 HR PRIOR)
  2. TORADOL [Concomitant]
     Active Substance: KETOROLAC TROMETHAMINE
     Indication: ANALGESIC THERAPY
     Dosage: 60 MG, UNK (15^ PRIOR)
     Route: 030
  3. VALIUM [Concomitant]
     Active Substance: DIAZEPAM
     Indication: ANXIOLYTIC THERAPY
     Dosage: 10 MG, UNK, (1HR PRIOR)
     Route: 048
  4. MOTRIN [Concomitant]
     Active Substance: IBUPROFEN
     Dosage: 800 MG, UNK, (LAST NIGHT)
  5. EPINEPHRINE/LIDOCAINE HYDROCHLORIDE [Suspect]
     Active Substance: EPINEPHRINE\LIDOCAINE HYDROCHLORIDE
     Dosage: UNK
  6. CYTOTEC [Concomitant]
     Active Substance: MISOPROSTOL
     Dosage: 200 UG, UNK, (LAST NIGHT)
  7. IBUPROFEN. [Concomitant]
     Active Substance: IBUPROFEN
     Indication: ANALGESIC THERAPY
     Dosage: 600 MG, 1X/DAY (EVENING PRIOR)
  8. LIDOCAINE HCL [Suspect]
     Active Substance: LIDOCAINE HYDROCHLORIDE
     Indication: LOCAL ANAESTHESIA
     Dosage: 10 ML, UNK (1%)
     Route: 019
     Dates: start: 20160502, end: 20160502
  9. VALIUM [Concomitant]
     Active Substance: DIAZEPAM
     Dosage: UNK
  10. CYTOTEC [Concomitant]
     Active Substance: MISOPROSTOL
     Indication: CERVIX DISORDER
     Dosage: UNK, 1X/DAY (200/EVENING PRIOR)
  11. LIDOCAINE HCL [Suspect]
     Active Substance: LIDOCAINE HYDROCHLORIDE
     Indication: ANAESTHESIA PROCEDURE
  12. B+O [Concomitant]
     Indication: ANALGESIC THERAPY
     Dosage: UNK, (15^ PRIOR)
  13. PHENERGAN [Concomitant]
     Active Substance: PROMETHAZINE HYDROCHLORIDE
     Dosage: 25 MG, UNK, (1 HR AGO)

REACTIONS (6)
  - Generalised tonic-clonic seizure [Recovered/Resolved]
  - Rales [Unknown]
  - Respiratory disorder [Unknown]
  - Fatigue [None]
  - Blood calcium decreased [None]
  - Drug hypersensitivity [Unknown]

NARRATIVE: CASE EVENT DATE: 20160502
